FAERS Safety Report 4565807-9 (Version None)
Quarter: 2005Q1

REPORT INFORMATION
  Report Type: 
  Country: None (occurrence: None)
  Receive Date: 20050128
  Receipt Date: 20050117
  Transmission Date: 20050727
  Serious: Yes (Hospitalization)
  Sender: FDA-Public Use
  Company Number: 2005017024

PATIENT
  Age: 78 Year
  Sex: Female

DRUGS (11)
  1. SPIRONOLACTONE [Suspect]
     Indication: ILL-DEFINED DISORDER
     Dosage: 50 MG (50 MG, EVERY DAY), ORAL
     Route: 048
     Dates: start: 20030615, end: 20040912
  2. METFORMIN HEUMANN (METFORMIN) [Suspect]
     Indication: ILL-DEFINED DISORDER
     Dosage: 1700 MG (850 MG, EVERY DAY), ORAL
     Route: 048
     Dates: start: 20000615, end: 20040912
  3. FUROSEMIDE [Suspect]
     Indication: ILL-DEFINED DISORDER
     Dosage: SEE IMAGE
     Route: 048
     Dates: start: 20030615, end: 20040912
  4. FUROSEMIDE [Suspect]
     Indication: ILL-DEFINED DISORDER
     Dosage: SEE IMAGE
     Route: 048
     Dates: start: 20040914
  5. CANDESARTAN (CANDESARTAN) [Suspect]
     Indication: ILL-DEFINED DISORDER
     Dosage: 1 DF (EVERY DAY), ORAL
     Route: 048
     Dates: start: 20040615, end: 20040912
  6. ATORVASTATIN CALCIUM [Concomitant]
  7. BISOPROLOL FUMARATE [Concomitant]
  8. ALLOPURINOL [Concomitant]
  9. GLIMEPIRIDE [Concomitant]
  10. DIOSMIN (DIOSMIN) [Concomitant]
  11. PIASCLEDINE (PERSEAE OLEUM SOYA OIL) [Concomitant]

REACTIONS (7)
  - BLOOD CREATININE INCREASED [None]
  - BLOOD SODIUM DECREASED [None]
  - BLOOD UREA INCREASED [None]
  - DEHYDRATION [None]
  - DEPRESSED LEVEL OF CONSCIOUSNESS [None]
  - DIARRHOEA [None]
  - HYPOGLYCAEMIA [None]
